FAERS Safety Report 8495281-1 (Version None)
Quarter: 2012Q2

REPORT INFORMATION
  Report Type: 
  Country: None (occurrence: None)
  Receive Date: 20120628
  Receipt Date: 20120615
  Transmission Date: 20120825
  Serious: Yes (Other)
  Sender: FDA-Public Use
  Company Number: MC201200315

PATIENT
  Age: 53 Year
  Sex: Male
  Weight: 104.5 kg

DRUGS (4)
  1. PRASUGREL (PRASUGREL) [Concomitant]
  2. ASPIRIN [Concomitant]
  3. ANGIOMAX [Suspect]
     Indication: PERCUTANEOUS CORONARY INTERVENTION
     Dosage: 16 ML, BOLUS, INTRAVENOUS, 36.4 ML, HR, INTRAVENOUS
     Route: 040
     Dates: start: 20120501, end: 20120501
  4. ANGIOMAX [Suspect]
     Indication: PERCUTANEOUS CORONARY INTERVENTION
     Dosage: 16 ML, BOLUS, INTRAVENOUS, 36.4 ML, HR, INTRAVENOUS
     Route: 040
     Dates: start: 20120501, end: 20120501

REACTIONS (1)
  - CORONARY ARTERY THROMBOSIS [None]
